FAERS Safety Report 9272540 (Version 1)
Quarter: 2013Q2

REPORT INFORMATION
  Report Type: Spontaneous
  Country: PL (occurrence: PL)
  Receive Date: 20130506
  Receipt Date: 20130506
  Transmission Date: 20140414
  Serious: Yes (Hospitalization)
  Sender: FDA-Public Use
  Company Number: PL-009507513-1305POL000155

PATIENT
  Age: 20 Year
  Sex: Female

DRUGS (3)
  1. TRIDERM [Suspect]
     Indication: ACNE
     Dosage: UNK
     Route: 061
     Dates: start: 200412
  2. TRAVOGEN [Suspect]
     Indication: ACNE
     Dosage: UNK
     Route: 061
     Dates: start: 200412
  3. PROPOLIS [Suspect]
     Indication: ACNE
     Dosage: UNK
     Route: 061
     Dates: start: 200412

REACTIONS (10)
  - Pyoderma [Recovering/Resolving]
  - Dermatitis [Recovering/Resolving]
  - Mucocutaneous candidiasis [Recovering/Resolving]
  - Drug ineffective [Unknown]
  - Hyperkeratosis [Unknown]
  - Onychoclasis [Unknown]
  - Drug administered at inappropriate site [Unknown]
  - Enterococcus test positive [None]
  - Staphylococcus test positive [None]
  - Proteus test positive [None]
